FAERS Safety Report 4512049-9 (Version None)
Quarter: 2004Q4

REPORT INFORMATION
  Report Type: 
  Country: None (occurrence: None)
  Receive Date: 20041123
  Receipt Date: 20041110
  Transmission Date: 20050328
  Serious: Yes (Other)
  Sender: FDA-Public Use
  Company Number: 2004-DE-05774GD

PATIENT
  Sex: Male

DRUGS (2)
  1. NEVIRAPINE (NEVIRAPINE) (NR) (NEVIRAPINE) [Suspect]
     Indication: HIV INFECTION
  2. ZIDOVUDINE [Suspect]
     Indication: HIV INFECTION

REACTIONS (23)
  - ADJUSTMENT DISORDER [None]
  - BLOOD GROWTH HORMONE DECREASED [None]
  - CD4 LYMPHOCYTES DECREASED [None]
  - CONVULSION [None]
  - DEPRESSION [None]
  - DIPLEGIA [None]
  - DISTURBANCE IN SOCIAL BEHAVIOUR [None]
  - DRUG EXPOSURE DURING PREGNANCY [None]
  - DRUG TOXICITY [None]
  - DYSTHYMIC DISORDER [None]
  - EMOTIONAL DISORDER [None]
  - FEELING ABNORMAL [None]
  - GROWTH RETARDATION [None]
  - HEPATOSPLENOMEGALY [None]
  - HYPERINSULINAEMIA [None]
  - HYPOGLYCAEMIA [None]
  - INFECTION [None]
  - LUNG DISORDER [None]
  - LYMPHADENOPATHY [None]
  - LYMPHOPENIA [None]
  - PSYCHOMOTOR SKILLS IMPAIRED [None]
  - PURULENCE [None]
  - VIRAEMIA [None]
